FAERS Safety Report 8479486-1 (Version None)
Quarter: 2012Q2

REPORT INFORMATION
  Report Type: 
  Country: None (occurrence: None)
  Receive Date: 20120629
  Receipt Date: 20120620
  Transmission Date: 20120825
  Serious: Yes (Death)
  Sender: FDA-Public Use
  Company Number: US-CELGENEUS-163-21880-12063353

PATIENT
  Sex: Male
  Weight: 84.898 kg

DRUGS (11)
  1. METHADONE HCL [Concomitant]
     Dosage: 1.5
     Route: 048
  2. FILGRASTIM [Concomitant]
     Dosage: 480 MICROGRAM
     Route: 058
  3. ASCORBIC ACID [Concomitant]
     Dosage: 500 MILLIGRAM
     Route: 048
  4. VITAMIN D [Concomitant]
     Route: 048
  5. MULTI-VITAMINS [Concomitant]
     Dosage: 1 TABLET
     Route: 048
  6. PERCOCET [Concomitant]
     Indication: PAIN
     Dosage: 1-2 TABS
     Route: 048
  7. REVLIMID [Suspect]
     Dosage: 10 MILLIGRAM
     Route: 048
     Dates: start: 20101115
  8. ASPIRIN [Concomitant]
     Dosage: 81 MILLIGRAM
     Route: 048
  9. CIPROFLOXACIN HCL [Concomitant]
     Dosage: 500 MILLIGRAM
     Route: 048
  10. CITALOPRAM HYDROBROMIDE [Concomitant]
     Dosage: 20 MILLIGRAM
     Route: 048
  11. ZOLPIDEM TARTRATE [Concomitant]
     Indication: SLEEP DISORDER
     Dosage: 10 MILLIGRAM
     Route: 048

REACTIONS (2)
  - CHRONIC MYELOMONOCYTIC LEUKAEMIA [None]
  - ACUTE LEUKAEMIA [None]
